FAERS Safety Report 9850573 (Version 1)
Quarter: 2013Q4

REPORT INFORMATION
  Report Type: Spontaneous
  Country: US (occurrence: None)
  Receive Date: 20131226
  Receipt Date: 20131226
  Transmission Date: 20140711
  Serious: Yes (Other)
  Sender: FDA-Public Use
  Company Number: PHEH2012US015583

PATIENT
  Age: 82 Year
  Sex: Male

DRUGS (3)
  1. FORADIL [Suspect]
     Route: 055
  2. VITAMIN E (TOCOPHEROL) [Concomitant]
  3. COUMADIN (WARFARIN SODIUM) [Concomitant]

REACTIONS (3)
  - Pneumonia [None]
  - Gastrooesophageal reflux disease [None]
  - Nervousness [None]
